FAERS Safety Report 9221605 (Version 1)
Quarter: 2013Q2

REPORT INFORMATION
  Report Type: Spontaneous
  Country: US (occurrence: US)
  Receive Date: 20130410
  Receipt Date: 20130410
  Transmission Date: 20140414
  Serious: No
  Sender: FDA-Public Use
  Company Number: US-009507513-1304USA000605

PATIENT
  Age: 80 Year
  Sex: Female
  Weight: 73 kg

DRUGS (28)
  1. INTEGRILIN [Suspect]
     Dosage: 17 MG (8.5 ML), ONCE
     Route: 058
     Dates: start: 20130331
  2. INTEGRILIN [Suspect]
     Dosage: 17 MG (8.5 ML), ONCE
     Route: 042
     Dates: start: 20130331
  3. TYLENOL [Concomitant]
  4. ASPIRIN [Concomitant]
  5. LIPITOR [Concomitant]
  6. DULCOLAX [Concomitant]
  7. DEXAMETHASONE [Concomitant]
  8. DIAZEPAM [Concomitant]
  9. BENTYL [Concomitant]
  10. CARDIZEM [Concomitant]
  11. BENADRYL [Concomitant]
  12. COLACE [Concomitant]
  13. LOVENOX [Concomitant]
  14. GUAIFENESIN [Concomitant]
  15. LABETALOL HYDROCHLORIDE [Concomitant]
  16. ZESTRIL [Concomitant]
  17. ATIVAN [Concomitant]
  18. LOPRESSOR [Concomitant]
  19. REMERON [Concomitant]
  20. MORPHINE [Concomitant]
  21. NITROGLYCERIN [Concomitant]
  22. ZOFRAN [Concomitant]
  23. PERCOCET [Concomitant]
  24. PHENERGAN (PROMETHAZINE HYDROCHLORIDE) [Concomitant]
  25. PROTONIX [Concomitant]
  26. SUCRALFATE [Concomitant]
  27. ZANAFLEX [Concomitant]
  28. AMBIEN [Concomitant]

REACTIONS (4)
  - Extravasation [Unknown]
  - Injection site pain [Unknown]
  - Incorrect route of drug administration [Unknown]
  - Incorrect dose administered [Unknown]
